FAERS Safety Report 4779056-2 (Version None)
Quarter: 2005Q3

REPORT INFORMATION
  Report Type: 
  Country: None (occurrence: None)
  Receive Date: 20050923
  Receipt Date: 20050905
  Transmission Date: 20060218
  Serious: Yes (Hospitalization)
  Sender: FDA-Public Use
  Company Number: 2005120343

PATIENT
  Age: 61 Year
  Sex: Female

DRUGS (1)
  1. NORVASC [Suspect]
     Indication: ILL-DEFINED DISORDER
     Dosage: ORAL
     Route: 048
     Dates: start: 20050823

REACTIONS (5)
  - DIARRHOEA [None]
  - DIZZINESS [None]
  - ERYSIPELAS [None]
  - FEELING COLD [None]
  - FEELING HOT [None]
